FAERS Safety Report 8849789 (Version 1)
Quarter: 2012Q4

REPORT INFORMATION
  Report Type: 
  Country: US (occurrence: US)
  Receive Date: 20121019
  Receipt Date: 20121019
  Transmission Date: 20130627
  Serious: Yes (Hospitalization, Disabling)
  Sender: FDA-Public Use
  Company Number: US-BAYER-2012-106997

PATIENT
  Age: 31 Year
  Sex: Female

DRUGS (1)
  1. MIRENA [Suspect]
     Indication: CONTRACEPTION
     Dosage: 20 mcg/24hr, CONT
     Route: 015
     Dates: start: 20091219, end: 20120917

REACTIONS (4)
  - Nervous system disorder [Recovered/Resolved]
  - Device expulsion [None]
  - Muscular weakness [Recovered/Resolved]
  - Peroneal nerve palsy [Recovered/Resolved]
